FAERS Safety Report 6517950-2 (Version None)
Quarter: 2009Q4

REPORT INFORMATION
  Report Type: 
  Country: None (occurrence: None)
  Receive Date: 20091224
  Receipt Date: 20091221
  Transmission Date: 20100525
  Serious: Yes (Death, Hospitalization, Other)
  Sender: FDA-Public Use
  Company Number: US-CELGENEUS-163-21880-09050757

PATIENT
  Sex: Male

DRUGS (24)
  1. REVLIMID [Suspect]
     Indication: MULTIPLE MYELOMA
     Dosage: 10-25 MG
     Route: 048
     Dates: start: 20080613, end: 20081128
  2. PREDNISONE TAB [Suspect]
     Indication: DRUG USE FOR UNKNOWN INDICATION
     Route: 065
  3. DEXAMETHASONE TAB [Concomitant]
     Indication: MULTIPLE MYELOMA
     Route: 065
     Dates: start: 20080905
  4. LORAZEPAM [Concomitant]
     Indication: ANXIETY
     Route: 048
  5. BACTRIM DS [Concomitant]
     Indication: DRUG USE FOR UNKNOWN INDICATION
     Route: 048
  6. PROCHLORPERAZINE [Concomitant]
     Indication: NAUSEA
     Route: 048
  7. WARFARIN [Concomitant]
     Indication: DRUG USE FOR UNKNOWN INDICATION
     Route: 048
  8. DELTASONE [Concomitant]
     Indication: DRUG USE FOR UNKNOWN INDICATION
     Route: 065
  9. DELTASONE [Concomitant]
     Route: 065
  10. DELTASONE [Concomitant]
     Route: 065
  11. DUONEB [Concomitant]
     Indication: DRUG USE FOR UNKNOWN INDICATION
     Route: 065
  12. DYAZIDE [Concomitant]
     Indication: DRUG USE FOR UNKNOWN INDICATION
     Route: 048
  13. EFFEXOR XR [Concomitant]
     Indication: DRUG USE FOR UNKNOWN INDICATION
     Route: 048
  14. ENOXAPARIN [Concomitant]
     Indication: DRUG USE FOR UNKNOWN INDICATION
     Dosage: 85
     Route: 058
  15. ESZOPICLONE [Concomitant]
     Indication: DRUG USE FOR UNKNOWN INDICATION
     Route: 048
  16. OXYCODONE [Concomitant]
     Indication: PAIN
     Dosage: 25-30MG
     Route: 048
  17. OMEPRAZOLE [Concomitant]
     Indication: DRUG USE FOR UNKNOWN INDICATION
     Route: 048
  18. NEBULIZER [Concomitant]
     Indication: DRUG USE FOR UNKNOWN INDICATION
     Route: 065
  19. OXYCONTIN [Concomitant]
     Indication: DRUG USE FOR UNKNOWN INDICATION
     Route: 065
  20. COMPAZINE [Concomitant]
     Indication: DRUG USE FOR UNKNOWN INDICATION
     Route: 065
  21. ATIVAN [Concomitant]
     Indication: ANXIETY
     Route: 065
  22. LUNESTA [Concomitant]
     Indication: DRUG USE FOR UNKNOWN INDICATION
     Route: 048
  23. TRIMETHOPRIM + SULFAMETHOXAZOLE [Concomitant]
     Indication: DRUG USE FOR UNKNOWN INDICATION
     Dosage: 800/160
     Route: 048
  24. Z-PAK [Concomitant]
     Indication: DRUG USE FOR UNKNOWN INDICATION
     Route: 065

REACTIONS (7)
  - BLOOD COUNT ABNORMAL [None]
  - BRONCHITIS [None]
  - CHRONIC OBSTRUCTIVE PULMONARY DISEASE [None]
  - DEATH [None]
  - DEEP VEIN THROMBOSIS [None]
  - OEDEMA PERIPHERAL [None]
  - PNEUMONIA [None]
